FAERS Safety Report 7913562-4 (Version None)
Quarter: 2011Q4

REPORT INFORMATION
  Report Type: 
  Country: None (occurrence: None)
  Receive Date: 20111110
  Receipt Date: 20111017
  Transmission Date: 20120403
  Serious: Yes (Other)
  Sender: FDA-Public Use
  Company Number: 54973-AE # 616

PATIENT
  Age: 5 Month
  Sex: Female
  Weight: 6.3504 kg

DRUGS (3)
  1. ROCEPHIN [Suspect]
     Indication: ANTIBIOTIC THERAPY
     Dosage: INJECTION
     Dates: start: 20111014
  2. HYLAND'S BABY TEETHING TABLETS [Suspect]
     Indication: TEETHING
     Dosage: 1 TABLET X 3 DOSES, EVERY HOUR
     Dates: start: 20111015
  3. HYLAND'S BABY TEETHING TABLETS [Suspect]
     Indication: IRRITABILITY
     Dosage: 1 TABLET X 3 DOSES, EVERY HOUR
     Dates: start: 20111015

REACTIONS (3)
  - PYREXIA [None]
  - WHITE BLOOD CELL COUNT INCREASED [None]
  - CONVULSION [None]
